FAERS Safety Report 9383610 (Version 1)
Quarter: 2013Q3

REPORT INFORMATION
  Report Type: Spontaneous
  Country: US (occurrence: US)
  Receive Date: 20130704
  Receipt Date: 20130704
  Transmission Date: 20140515
  Serious: No
  Sender: FDA-Public Use
  Company Number: US-PFIZER INC-2013195636

PATIENT
  Age: 68 Year
  Sex: Male

DRUGS (12)
  1. SUTENT [Suspect]
     Indication: RENAL CANCER
     Dosage: 12.5 MG, UNK
     Dates: start: 20130614
  2. ASPIRIN [Concomitant]
     Dosage: UNK
  3. CENTRUM [Concomitant]
     Dosage: UNK
  4. CRESTOR [Concomitant]
     Dosage: UNK
  5. FISH OIL [Concomitant]
     Dosage: UNK
  6. FLOMAX [Concomitant]
     Dosage: UNK
  7. HYDROCODONE W/ACETAMINOPHEN [Concomitant]
     Dosage: UNK
  8. HYDROMORPHONE HYDROCHLORIDE [Concomitant]
     Dosage: UNK
  9. ISOSORBIDE DINITRATE [Concomitant]
     Dosage: UNK
  10. LEVEMIR [Concomitant]
     Dosage: UNK
  11. LISINOPRIL [Concomitant]
     Dosage: UNK
  12. METOPROLOL SUCCINATE ER [Concomitant]
     Dosage: UNK

REACTIONS (2)
  - Vomiting [Unknown]
  - Fatigue [Unknown]
